FAERS Safety Report 8819984 (Version 1)
Quarter: 2012Q4

REPORT INFORMATION
  Report Type: 
  Country: AU (occurrence: AU)
  Receive Date: 20121001
  Receipt Date: 20121001
  Transmission Date: 20130627
  Serious: Yes (Other)
  Sender: FDA-Public Use
  Company Number: PHHY2012AU084100

PATIENT
  Age: 44 Year
  Sex: Male

DRUGS (3)
  1. ENOXAPARIN [Suspect]
  2. ACETYLSALICYLIC ACID [Suspect]
  3. CLOPIDOGREL [Suspect]

REACTIONS (2)
  - Vascular pseudoaneurysm [Unknown]
  - Swelling [Unknown]
